FAERS Safety Report 25428280 (Version 1)
Quarter: 2025Q2

REPORT INFORMATION
  Report Type: Spontaneous
  Country: CN (occurrence: CN)
  Receive Date: 20250612
  Receipt Date: 20250612
  Transmission Date: 20250717
  Serious: Yes (Other)
  Sender: ROCHE
  Company Number: CN-ROCHE-10000304897

PATIENT
  Age: 6 Year
  Sex: Female

DRUGS (1)
  1. MABTHERA [Suspect]
     Active Substance: RITUXIMAB
     Indication: Autoimmune encephalopathy
     Route: 042
     Dates: start: 20250530, end: 20250531

REACTIONS (10)
  - Tachypnoea [Recovering/Resolving]
  - Heart rate increased [Recovering/Resolving]
  - Blood pH increased [Unknown]
  - PO2 increased [Unknown]
  - PCO2 decreased [Unknown]
  - Haemoglobin decreased [Unknown]
  - Haematocrit decreased [Unknown]
  - Blood calcium decreased [Unknown]
  - Blood glucose increased [Unknown]
  - Blood lactic acid increased [Unknown]

NARRATIVE: CASE EVENT DATE: 20250530
